FAERS Safety Report 5227785-9 (Version None)
Quarter: 2007Q1

REPORT INFORMATION
  Report Type: 
  Country: None (occurrence: None)
  Receive Date: 20070202
  Receipt Date: 20070125
  Transmission Date: 20070707
  Serious: Yes (Other)
  Sender: FDA-Public Use
  Company Number: US-PFIZER INC-2007007031

PATIENT
  Sex: Female
  Weight: 56.7 kg

DRUGS (1)
  1. BEXTRA [Suspect]
     Indication: PAIN
     Dates: start: 20020706, end: 20021202

REACTIONS (6)
  - AMNESIA [None]
  - DEPRESSION [None]
  - DYSLIPIDAEMIA [None]
  - HYPERTENSIVE CRISIS [None]
  - INSULIN RESISTANT DIABETES [None]
  - METABOLIC SYNDROME [None]
